FAERS Safety Report 15775727 (Version 1)
Quarter: 2018Q4

REPORT INFORMATION
  Report Type: Report from Study
  Country: ES (occurrence: ES)
  Receive Date: 20181231
  Receipt Date: 20181231
  Transmission Date: 20190205
  Serious: Yes (Other)
  Sender: FDA-Public Use
  Company Number: ES-ROCHE-2235846

PATIENT

DRUGS (1)
  1. BEVACIZUMAB. [Suspect]
     Active Substance: BEVACIZUMAB
     Indication: BREAST CANCER METASTATIC
     Route: 065

REACTIONS (15)
  - Diarrhoea haemorrhagic [Unknown]
  - Decreased appetite [Unknown]
  - Renal failure [Unknown]
  - Hypertensive crisis [Unknown]
  - Mouth haemorrhage [Unknown]
  - Osteonecrosis [Unknown]
  - Proteinuria [Unknown]
  - Fatigue [Unknown]
  - Pulmonary embolism [Unknown]
  - Skin toxicity [Unknown]
  - Hypertension [Unknown]
  - Epistaxis [Unknown]
  - Neutropenia [Unknown]
  - Osteonecrosis of jaw [Unknown]
  - Paraesthesia [Unknown]
